FAERS Safety Report 24281488 (Version 1)
Quarter: 2024Q3

REPORT INFORMATION
  Report Type: Spontaneous
  Country: US (occurrence: None)
  Receive Date: 20240904
  Receipt Date: 20240904
  Transmission Date: 20241017
  Serious: Yes (Hospitalization)
  Sender: Public
  Company Number: None

PATIENT
  Sex: 0

DRUGS (2)
  1. PAXLOVID [Suspect]
     Active Substance: NIRMATRELVIR\RITONAVIR
  2. TACROLIMUS [Suspect]
     Active Substance: TACROLIMUS

REACTIONS (5)
  - Pain [None]
  - Renal impairment [None]
  - Pancreas transplant [None]
  - Drug level increased [None]
  - Drug interaction [None]
